FAERS Safety Report 10755237 (Version 1)
Quarter: 2015Q1

REPORT INFORMATION
  Report Type: Spontaneous
  Country: US (occurrence: US)
  Receive Date: 20150202
  Receipt Date: 20150202
  Transmission Date: 20150721
  Serious: No
  Sender: FDA-Public Use
  Company Number: US-BAXTER-2015BAX001941

PATIENT

DRUGS (1)
  1. GAMMAGARD LIQUID [Suspect]
     Active Substance: HUMAN IMMUNOGLOBULIN G
     Indication: PRODUCT USED FOR UNKNOWN INDICATION
     Route: 042

REACTIONS (6)
  - Pain [Unknown]
  - Infusion site reaction [Unknown]
  - Chills [Unknown]
  - Tachycardia [Unknown]
  - Screaming [Unknown]
  - Confusional state [Unknown]

NARRATIVE: CASE EVENT DATE: 2014
